FAERS Safety Report 9600259 (Version 1)
Quarter: 2013Q4

REPORT INFORMATION
  Report Type: Spontaneous
  Country: US (occurrence: US)
  Receive Date: 20131004
  Receipt Date: 20131004
  Transmission Date: 20140711
  Serious: No
  Sender: FDA-Public Use
  Company Number: US-AMGEN-USASP2013033850

PATIENT
  Age: 60 Year
  Sex: Male
  Weight: 83.9 kg

DRUGS (8)
  1. ENBREL [Suspect]
     Indication: PRODUCT USED FOR UNKNOWN INDICATION
     Dosage: 50 MG, 2 TIMES/WK
     Route: 058
  2. HYDROCHLOROTH [Concomitant]
     Dosage: 12.5 MG, UNK
  3. TOPROL [Concomitant]
     Dosage: 25 MG, UNK
  4. COZAAR [Concomitant]
     Dosage: 25 MG, UNK
  5. VITAMIN D                          /00107901/ [Concomitant]
     Dosage: 1000 UNIT, UNK
  6. GLUCOSAMINE CHONDROITIN + MSM [Concomitant]
     Dosage: UNK
  7. AMBIEN [Concomitant]
     Dosage: 10 MG, UNK
  8. ASA [Concomitant]
     Dosage: 81 MG, UNK

REACTIONS (1)
  - Psoriasis [Unknown]
